FAERS Safety Report 5871632-9 (Version None)
Quarter: 2008Q3

REPORT INFORMATION
  Report Type: 
  Country: None (occurrence: None)
  Receive Date: 20080904
  Receipt Date: 20080904
  Transmission Date: 20090109
  Serious: No
  Sender: FDA-Public Use
  Company Number: None

PATIENT
  Sex: Male

DRUGS (2)
  1. SOMA [Suspect]
     Dates: start: 20080813, end: 20080820
  2. ADVIL [Concomitant]

REACTIONS (2)
  - DRUG ERUPTION [None]
  - MUSCLE SPASMS [None]
